FAERS Safety Report 6733381-4 (Version None)
Quarter: 2010Q2

REPORT INFORMATION
  Report Type: 
  Country: None (occurrence: None)
  Receive Date: 20100518
  Receipt Date: 20100514
  Transmission Date: 20101027
  Serious: Yes (Death)
  Sender: FDA-Public Use
  Company Number: 2010SP025784

PATIENT
  Age: 40 Year
  Sex: Male

DRUGS (1)
  1. TEMODAR [Suspect]
     Indication: CONNECTIVE TISSUE DISORDER

REACTIONS (2)
  - CONNECTIVE TISSUE DISORDER [None]
  - DISEASE PROGRESSION [None]
